FAERS Safety Report 10074371 (Version 1)
Quarter: 2014Q2

REPORT INFORMATION
  Report Type: Spontaneous
  Country: US (occurrence: US)
  Receive Date: 20140411
  Receipt Date: 20140411
  Transmission Date: 20141212
  Serious: No
  Sender: FDA-Public Use
  Company Number: US-SANOFI-AVENTIS-2013SA062800

PATIENT
  Age: 65 Year
  Sex: Female

DRUGS (4)
  1. ALLEGRA D [Suspect]
     Indication: LACRIMATION INCREASED
     Dosage: DOSE- 60/120 MG
     Route: 065
     Dates: start: 20130612, end: 20130612
  2. ALLEGRA D [Suspect]
     Indication: NASAL CONGESTION
     Dosage: DOSE- 60/120 MG
     Route: 065
     Dates: start: 20130612, end: 20130612
  3. ALLEGRA D [Suspect]
     Indication: NASAL CONGESTION
     Dosage: DOSE- 60/120 MG
     Route: 065
     Dates: start: 20130612, end: 20130612
  4. ALLEGRA D [Suspect]
     Indication: COUGH
     Dosage: DOSE- 60/120 MG
     Route: 065
     Dates: start: 20130612, end: 20130612

REACTIONS (1)
  - Insomnia [Unknown]
